FAERS Safety Report 8051550-0 (Version None)
Quarter: 2012Q1

REPORT INFORMATION
  Report Type: 
  Country: None (occurrence: None)
  Receive Date: 20120117
  Receipt Date: 20120112
  Transmission Date: 20120608
  Serious: Yes (Life-Threatening, Other)
  Sender: FDA-Public Use
  Company Number: PHHO2011PT020910

PATIENT
  Sex: Female
  Weight: 69 kg

DRUGS (1)
  1. FTY [Suspect]
     Indication: MULTIPLE SCLEROSIS
     Dosage: UNK
     Dates: start: 20030707, end: 20111023

REACTIONS (3)
  - BREAST CANCER [None]
  - METASTASES TO BONE [None]
  - METASTASES TO LIVER [None]
